FAERS Safety Report 4515784-1 (Version None)
Quarter: 2004Q4

REPORT INFORMATION
  Report Type: 
  Country: None (occurrence: None)
  Receive Date: 20041129
  Receipt Date: 20041122
  Transmission Date: 20050328
  Serious: Yes (Disabling, Other)
  Sender: FDA-Public Use
  Company Number: 2004-11-0262

PATIENT
  Age: 54 Year
  Sex: Male

DRUGS (3)
  1. INTRON A [Suspect]
     Indication: MALIGNANT MELANOMA
     Dosage: 40-20 MIU* SUBCUTANEOUS
     Route: 058
     Dates: start: 20030324, end: 20030420
  2. INTRON A [Suspect]
     Indication: MALIGNANT MELANOMA
     Dosage: 40-20 MIU* SUBCUTANEOUS
     Route: 058
     Dates: start: 20030324, end: 20030610
  3. INTRON A [Suspect]
     Indication: MALIGNANT MELANOMA
     Dosage: 40-20 MIU* SUBCUTANEOUS
     Route: 058
     Dates: start: 20030421, end: 20030610

REACTIONS (4)
  - COGNITIVE DISORDER [None]
  - DIZZINESS [None]
  - DROOLING [None]
  - MALIGNANT MELANOMA [None]
